FAERS Safety Report 14624525 (Version 1)
Quarter: 2018Q1

REPORT INFORMATION
  Report Type: Spontaneous
  Country: US (occurrence: US)
  Receive Date: 20180311
  Receipt Date: 20180311
  Transmission Date: 20180509
  Serious: Yes (Other)
  Sender: FDA-Public Use
  Company Number: None

PATIENT
  Age: 60 Year
  Sex: Female
  Weight: 90 kg

DRUGS (1)
  1. OSELTAMIVIR PHOSPHATE CAPS [Suspect]
     Active Substance: OSELTAMIVIR PHOSPHATE
     Indication: INFLUENZA
     Dosage: ?          QUANTITY:10 CAPSULE(S);?
     Route: 048
     Dates: end: 20180125

REACTIONS (4)
  - Oral candidiasis [None]
  - Hypertrophy of tongue papillae [None]
  - Oral pain [None]
  - Burn oral cavity [None]

NARRATIVE: CASE EVENT DATE: 20180202
